FAERS Safety Report 25816389 (Version 1)
Quarter: 2025Q3

REPORT INFORMATION
  Report Type: Spontaneous
  Country: US (occurrence: US)
  Receive Date: 20250918
  Receipt Date: 20250918
  Transmission Date: 20251020
  Serious: Yes (Hospitalization, Other)
  Sender: AZURITY PHARMACEUTICALS
  Company Number: US-AZURITY PHARMACEUTICALS, INC.-AZR202405-001536

PATIENT
  Age: 20 Month
  Sex: Female

DRUGS (28)
  1. METHYLPREDNISOLONE ACETATE [Suspect]
     Active Substance: METHYLPREDNISOLONE ACETATE
     Indication: Juvenile idiopathic arthritis
     Route: 042
  2. METHYLPREDNISOLONE ACETATE [Suspect]
     Active Substance: METHYLPREDNISOLONE ACETATE
     Indication: Haemophagocytic lymphohistiocytosis
  3. METHYLPREDNISOLONE ACETATE [Suspect]
     Active Substance: METHYLPREDNISOLONE ACETATE
     Indication: Interstitial lung disease
  4. JAKAFI [Suspect]
     Active Substance: RUXOLITINIB
     Indication: Still^s disease
     Route: 065
  5. JAKAFI [Suspect]
     Active Substance: RUXOLITINIB
     Indication: Juvenile idiopathic arthritis
     Route: 065
  6. JAKAFI [Suspect]
     Active Substance: RUXOLITINIB
     Indication: Haemophagocytic lymphohistiocytosis
     Route: 065
  7. JAKAFI [Suspect]
     Active Substance: RUXOLITINIB
     Indication: Interstitial lung disease
     Route: 065
  8. CANAKINUMAB [Suspect]
     Active Substance: CANAKINUMAB
     Indication: Juvenile idiopathic arthritis
     Route: 065
  9. CANAKINUMAB [Suspect]
     Active Substance: CANAKINUMAB
     Indication: Haemophagocytic lymphohistiocytosis
  10. CANAKINUMAB [Suspect]
     Active Substance: CANAKINUMAB
     Indication: Interstitial lung disease
  11. PREDNISOLONE ACETATE [Suspect]
     Active Substance: PREDNISOLONE ACETATE
     Indication: Juvenile idiopathic arthritis
  12. PREDNISOLONE ACETATE [Suspect]
     Active Substance: PREDNISOLONE ACETATE
     Indication: Haemophagocytic lymphohistiocytosis
  13. PREDNISOLONE ACETATE [Suspect]
     Active Substance: PREDNISOLONE ACETATE
     Indication: Interstitial lung disease
  14. TACROLIMUS [Suspect]
     Active Substance: TACROLIMUS
     Indication: Juvenile idiopathic arthritis
     Route: 065
  15. TACROLIMUS [Suspect]
     Active Substance: TACROLIMUS
     Indication: Haemophagocytic lymphohistiocytosis
  16. TACROLIMUS [Suspect]
     Active Substance: TACROLIMUS
     Indication: Interstitial lung disease
  17. ANAKINRA [Suspect]
     Active Substance: ANAKINRA
     Indication: Juvenile idiopathic arthritis
     Route: 065
  18. ANAKINRA [Suspect]
     Active Substance: ANAKINRA
     Indication: Haemophagocytic lymphohistiocytosis
     Route: 065
  19. ANAKINRA [Suspect]
     Active Substance: ANAKINRA
     Indication: Interstitial lung disease
     Route: 065
  20. TOFACITINIB CITRATE [Suspect]
     Active Substance: TOFACITINIB CITRATE
     Indication: Juvenile idiopathic arthritis
     Route: 065
  21. TOFACITINIB CITRATE [Suspect]
     Active Substance: TOFACITINIB CITRATE
     Indication: Haemophagocytic lymphohistiocytosis
  22. TOFACITINIB CITRATE [Suspect]
     Active Substance: TOFACITINIB CITRATE
     Indication: Interstitial lung disease
  23. ABATACEPT [Suspect]
     Active Substance: ABATACEPT
     Indication: Juvenile idiopathic arthritis
     Route: 065
  24. ABATACEPT [Suspect]
     Active Substance: ABATACEPT
     Indication: Haemophagocytic lymphohistiocytosis
  25. ABATACEPT [Suspect]
     Active Substance: ABATACEPT
     Indication: Interstitial lung disease
  26. INFLIXIMAB [Suspect]
     Active Substance: INFLIXIMAB
     Indication: Juvenile idiopathic arthritis
     Route: 065
  27. INFLIXIMAB [Suspect]
     Active Substance: INFLIXIMAB
     Indication: Haemophagocytic lymphohistiocytosis
  28. INFLIXIMAB [Suspect]
     Active Substance: INFLIXIMAB
     Indication: Interstitial lung disease

REACTIONS (3)
  - Haemophagocytic lymphohistiocytosis [Not Recovered/Not Resolved]
  - Interstitial lung disease [Not Recovered/Not Resolved]
  - Drug ineffective for unapproved indication [Unknown]
